FAERS Safety Report 9816883 (Version 1)
Quarter: 2014Q1

REPORT INFORMATION
  Report Type: Spontaneous
  Country: US (occurrence: US)
  Receive Date: 20140114
  Receipt Date: 20140114
  Transmission Date: 20141002
  Serious: No
  Sender: FDA-Public Use
  Company Number: US-BAUSCH-BL-2013-006212

PATIENT
  Age: 59 Year
  Sex: Female

DRUGS (3)
  1. LOTEMAX (LOTEPREDNOL ETABONATE OPHTHALMIC GEL 0.5%) [Suspect]
     Indication: FOREIGN BODY SENSATION IN EYES
     Dosage: 1 DROP IN LEFT EYE, FOUR TIMES PER DAY
     Route: 047
     Dates: start: 20131018, end: 20131112
  2. LOTEMAX (LOTEPREDNOL ETABONATE OPHTHALMIC GEL 0.5%) [Suspect]
     Dosage: 1 DROP IN RIGHT EYE, FOUR TIMES PER DAY
     Route: 047
     Dates: start: 20131018, end: 20131112
  3. RESTASIS [Concomitant]

REACTIONS (4)
  - Off label use [Recovered/Resolved]
  - Drug ineffective [Recovered/Resolved]
  - Condition aggravated [Recovering/Resolving]
  - Foreign body sensation in eyes [Recovering/Resolving]
